FAERS Safety Report 7071578-7 (Version None)
Quarter: 2010Q4

REPORT INFORMATION
  Report Type: 
  Country: None (occurrence: None)
  Receive Date: 20101029
  Receipt Date: 20091102
  Transmission Date: 20110411
  Serious: No
  Sender: FDA-Public Use
  Company Number: A0808860A

PATIENT
  Age: 54 Year
  Sex: Male

DRUGS (6)
  1. ADVAIR DISKUS 100/50 [Suspect]
     Indication: EMPHYSEMA
     Dosage: 1PUFF TWICE PER DAY
     Route: 055
     Dates: start: 20090601
  2. DICLOFENAC SODIUM [Concomitant]
  3. CHANTIX [Concomitant]
  4. VICODIN [Concomitant]
  5. ANTI-ANXIETY MED- NAME UNKNOWN [Concomitant]
  6. TRAZODONE [Concomitant]

REACTIONS (8)
  - COUGH [None]
  - DYSPHONIA [None]
  - DYSPNOEA [None]
  - HEADACHE [None]
  - MIDDLE INSOMNIA [None]
  - MUSCLE SPASMS [None]
  - OROPHARYNGEAL DISCOMFORT [None]
  - PRODUCT QUALITY ISSUE [None]
